FAERS Safety Report 25900665 (Version 1)
Quarter: 2025Q4

REPORT INFORMATION
  Report Type: Spontaneous
  Country: EU (occurrence: EU)
  Receive Date: 20251009
  Receipt Date: 20251009
  Transmission Date: 20260117
  Serious: Yes (Death, Other)
  Sender: AUROBINDO
  Company Number: EU-AFSSAPS-BS2025000757

PATIENT
  Age: 64 Year
  Sex: Male
  Weight: 55 kg

DRUGS (5)
  1. NAPROXEN SODIUM [Suspect]
     Active Substance: NAPROXEN SODIUM
     Indication: Back pain
     Dosage: 1100 MILLIGRAM, ONCE A DAY (2/JOUR)
     Route: 048
     Dates: start: 20250625, end: 20250629
  2. METHOCARBAMOL [Suspect]
     Active Substance: METHOCARBAMOL
     Indication: Back pain
     Dosage: 4/JOUR
     Route: 048
     Dates: start: 20250625, end: 20250629
  3. DOLIPRANE [Suspect]
     Active Substance: ACETAMINOPHEN
     Indication: Back pain
     Dosage: 3000 MILLIGRAM, ONCE A DAY (3/JOUR)
     Route: 048
     Dates: start: 20250625, end: 20250629
  4. OXAZEPAM [Concomitant]
     Active Substance: OXAZEPAM
     Indication: Product used for unknown indication
     Dosage: UNK
     Route: 065
  5. ENSTILAR [Concomitant]
     Active Substance: BETAMETHASONE DIPROPIONATE\CALCIPOTRIENE HYDRATE
     Indication: Product used for unknown indication
     Dosage: UNK
     Route: 065

REACTIONS (2)
  - Shock haemorrhagic [Fatal]
  - Duodenal ulcer [Fatal]

NARRATIVE: CASE EVENT DATE: 20250629
